FAERS Safety Report 21025747 (Version 1)
Quarter: 2022Q2

REPORT INFORMATION
  Report Type: Spontaneous
  Country: US (occurrence: US)
  Receive Date: 20220630
  Receipt Date: 20220630
  Transmission Date: 20220721
  Serious: No
  Sender: FDA-Public Use
  Company Number: US-CADILA HEALTHCARE LIMITED-US-ZYDUS-068517

PATIENT

DRUGS (2)
  1. BUDESONIDE [Suspect]
     Active Substance: BUDESONIDE
     Indication: Coeliac disease
     Dosage: 3 MILLIGRAM, TID
     Route: 048
     Dates: start: 2021
  2. BUDESONIDE [Suspect]
     Active Substance: BUDESONIDE
     Indication: Product use in unapproved indication

REACTIONS (2)
  - Product use in unapproved indication [Not Recovered/Not Resolved]
  - Drug ineffective for unapproved indication [Not Recovered/Not Resolved]

NARRATIVE: CASE EVENT DATE: 20210101
